FAERS Safety Report 23269123 (Version 2)
Quarter: 2024Q2

REPORT INFORMATION
  Report Type: Spontaneous
  Country: US (occurrence: US)
  Receive Date: 20231206
  Receipt Date: 20240514
  Transmission Date: 20240716
  Serious: No
  Sender: FDA-Public Use
  Company Number: US-SA-SAC20231204000289

PATIENT
  Age: 37 Year
  Sex: Female

DRUGS (3)
  1. DUPIXENT [Suspect]
     Active Substance: DUPILUMAB
     Indication: Dermatitis
     Dosage: 300 MG, QOW
     Route: 058
  2. BETAMETHASONE [Concomitant]
     Active Substance: BETAMETHASONE\BETAMETHASONE DIPROPIONATE
     Indication: Dermatitis
     Dosage: 0.05 %, BID
     Route: 061
     Dates: start: 20220204
  3. EUCRISA [Concomitant]
     Active Substance: CRISABOROLE
     Indication: Dermatitis
     Dosage: 2 %, BID
     Route: 061
     Dates: start: 20221122

REACTIONS (2)
  - Injection site pain [Unknown]
  - Product use in unapproved indication [Unknown]
